FAERS Safety Report 8190158-3 (Version None)
Quarter: 2012Q1

REPORT INFORMATION
  Report Type: 
  Country: None (occurrence: None)
  Receive Date: 20120305
  Receipt Date: 20120227
  Transmission Date: 20120608
  Serious: Yes (Disabling, Other)
  Sender: FDA-Public Use
  Company Number: ACO_28930_2012

PATIENT
  Age: 62 Year
  Sex: Female
  Weight: 52.6 kg

DRUGS (2)
  1. AMPYRA [Suspect]
     Indication: MULTIPLE SCLEROSIS
     Dosage: 10MG 10 MG, Q 12 HRS, ORAL
     Route: 048
     Dates: start: 20111201
  2. LAMISIL [Concomitant]

REACTIONS (6)
  - GAIT DISTURBANCE [None]
  - INCORRECT DOSE ADMINISTERED [None]
  - ACCIDENTAL OVERDOSE [None]
  - HYPOKINESIA [None]
  - MUSCULAR WEAKNESS [None]
  - MOVEMENT DISORDER [None]
